FAERS Safety Report 6099785-0 (Version None)
Quarter: 2009Q1

REPORT INFORMATION
  Report Type: 
  Country: None (occurrence: None)
  Receive Date: 20090303
  Receipt Date: 20090218
  Transmission Date: 20090719
  Serious: No
  Sender: FDA-Public Use
  Company Number: PHEH2008US09153

PATIENT
  Age: 55 Year
  Sex: Female

DRUGS (10)
  1. RECLAST [Suspect]
     Indication: OSTEOPOROSIS
     Dosage: 5 MG, UNK
     Dates: start: 20081007, end: 20081007
  2. RECLAST [Suspect]
     Indication: FRACTURE
  3. SYNTHROID [Concomitant]
     Dosage: 1.0 MG, QD
     Route: 048
  4. AMITRIPTYLINE [Concomitant]
     Dosage: 10 MG, QHS
     Route: 048
  5. CELEXA [Concomitant]
     Route: 048
  6. TOPAMAX [Concomitant]
  7. PREDNISONE [Concomitant]
  8. MULTI-VITAMINS [Concomitant]
  9. GLUCOSAMINE W/CHONDROITIN [Concomitant]
  10. LOVAZA [Concomitant]

REACTIONS (15)
  - ANOREXIA [None]
  - ARTHRALGIA [None]
  - CHILLS [None]
  - DYSPEPSIA [None]
  - DYSPNOEA [None]
  - FEAR [None]
  - HEADACHE [None]
  - INFLUENZA [None]
  - JOINT LOCK [None]
  - MOBILITY DECREASED [None]
  - PAIN [None]
  - PYREXIA [None]
  - SPEECH DISORDER [None]
  - TREMOR [None]
  - WEIGHT DECREASED [None]
